FAERS Safety Report 6079992-3 (Version None)
Quarter: 2009Q1

REPORT INFORMATION
  Report Type: 
  Country: None (occurrence: None)
  Receive Date: 20090217
  Receipt Date: 20081209
  Transmission Date: 20090719
  Serious: No
  Sender: FDA-Public Use
  Company Number: A0759631A

PATIENT
  Age: 89 Year
  Sex: Female

DRUGS (10)
  1. COREG CR [Suspect]
     Indication: HYPERTENSION
     Dosage: 10MG PER DAY
     Route: 048
  2. LOTENSIN [Concomitant]
  3. CHLORTHALIDONE [Concomitant]
  4. ALEVE [Concomitant]
  5. CRESTOR [Concomitant]
  6. PLAVIX [Concomitant]
  7. THYROID TAB [Concomitant]
  8. BUPROPION HCL [Concomitant]
  9. FOSAMAX [Concomitant]
  10. PREVACID [Concomitant]

REACTIONS (1)
  - BLOOD PRESSURE INCREASED [None]
